FAERS Safety Report 5161006-0 (Version None)
Quarter: 2006Q4

REPORT INFORMATION
  Report Type: 
  Country: None (occurrence: None)
  Receive Date: 20061121
  Receipt Date: 20061116
  Transmission Date: 20070319
  Serious: Yes (Hospitalization)
  Sender: FDA-Public Use
  Company Number: URSO-2006-047

PATIENT
  Age: 59 Year
  Sex: Male

DRUGS (6)
  1. URSO                                  (URSODEOXYCHOLIC ACID) [Suspect]
     Indication: HEPATIC FUNCTION ABNORMAL
     Dosage: SEE IMAGE
     Route: 048
     Dates: end: 20051005
  2. URSO                                  (URSODEOXYCHOLIC ACID) [Suspect]
     Indication: HEPATIC FUNCTION ABNORMAL
     Dosage: SEE IMAGE
     Route: 048
     Dates: start: 20051006, end: 20061017
  3. NIKORANMART                          (NICORANDIL) [Suspect]
     Indication: ANGINA PECTORIS
     Dosage: 15 MG
     Route: 048
     Dates: start: 20040721, end: 20061016
  4. MEVARICH             (PRAVASTATIN SODIUM) [Concomitant]
  5. LANSOPRAZOLE [Concomitant]
  6. BUFFERIN [Concomitant]

REACTIONS (3)
  - ALANINE AMINOTRANSFERASE INCREASED [None]
  - ASPARTATE AMINOTRANSFERASE INCREASED [None]
  - HEPATIC FUNCTION ABNORMAL [None]
